FAERS Safety Report 15171520 (Version 1)
Quarter: 2018Q3

REPORT INFORMATION
  Report Type: Spontaneous
  Country: US (occurrence: US)
  Receive Date: 20180720
  Receipt Date: 20180720
  Transmission Date: 20181010
  Serious: No
  Sender: FDA-Public Use
  Company Number: PHEH2018US028492

PATIENT
  Age: 75 Year
  Sex: Male

DRUGS (3)
  1. KETOCONAZOLE. [Suspect]
     Active Substance: KETOCONAZOLE
     Indication: PRODUCT USED FOR UNKNOWN INDICATION
     Dosage: UNK (APPLIED ONCE)
     Route: 061
     Dates: start: 20180705
  2. KETOCONAZOLE. [Suspect]
     Active Substance: KETOCONAZOLE
     Dosage: UNK (APPLIED TWICE)
     Route: 061
     Dates: start: 20180706
  3. KETOCONAZOLE. [Suspect]
     Active Substance: KETOCONAZOLE
     Dosage: UNK (APPLIED ONCE OR TWICE)
     Route: 061
     Dates: start: 20180707, end: 20180707

REACTIONS (4)
  - Hypersensitivity [Unknown]
  - Pruritus [Unknown]
  - Erythema [Unknown]
  - Burning sensation [Unknown]

NARRATIVE: CASE EVENT DATE: 20180707
